FAERS Safety Report 21930350 (Version 1)
Quarter: 2023Q1

REPORT INFORMATION
  Report Type: Spontaneous
  Country: US (occurrence: None)
  Receive Date: 20230130
  Receipt Date: 20230130
  Transmission Date: 20230417
  Serious: Yes (Other)
  Sender: FDA-Public Use
  Company Number: None

PATIENT
  Age: 10 Year
  Sex: Female
  Weight: 52 kg

DRUGS (1)
  1. SAPROPTERIN [Suspect]
     Active Substance: SAPROPTERIN
     Dosage: FREQUENCY : DAILY;?
     Route: 048
     Dates: start: 20210301, end: 20210601

REACTIONS (5)
  - Product substitution issue [None]
  - Mood altered [None]
  - Abnormal behaviour [None]
  - Disturbance in attention [None]
  - Impulse-control disorder [None]

NARRATIVE: CASE EVENT DATE: 20210315
